FAERS Safety Report 16184017 (Version 12)
Quarter: 2019Q4

REPORT INFORMATION
  Report Type: Report from Study
  Country: US (occurrence: US)
  Receive Date: 20190411
  Receipt Date: 20191017
  Transmission Date: 20200122
  Serious: Yes (Death, Life-Threatening, Hospitalization, Disabling, Other)
  Sender: FDA-Public Use
  Company Number: US-TESAROUBC-2019-TSO01131-US

PATIENT
  Age: 56 Year
  Sex: Female

DRUGS (43)
  1. ONDANSETRON [Concomitant]
     Active Substance: ONDANSETRON
     Indication: NAUSEA
     Dosage: 8 MG, PRN (1 IN 1 AS REQUIRED)
     Route: 048
     Dates: start: 20180221
  2. LOSARTAN. [Concomitant]
     Active Substance: LOSARTAN
     Indication: HYPERTENSION
     Dosage: 25 MG, 1 IN 1 D
     Route: 048
     Dates: start: 20181212
  3. OXYCODONE W/PARACETAMOL [Concomitant]
     Active Substance: ACETAMINOPHEN\OXYCODONE HYDROCHLORIDE
     Indication: PAIN
     Dosage: 330 MG, 1 IN 1 D
     Route: 048
     Dates: start: 20171101
  4. DIPHENHYDRAMINE. [Concomitant]
     Active Substance: DIPHENHYDRAMINE
     Indication: PRODUCT USED FOR UNKNOWN INDICATION
     Dosage: 25 MG, 1 IN 1 D
     Route: 048
     Dates: start: 20180221
  5. MAGNESIUM SULFATE. [Concomitant]
     Active Substance: MAGNESIUM SULFATE
     Indication: NUTRITIONAL SUPPLEMENTATION
     Dosage: 2 G, QD
     Route: 042
     Dates: start: 20190222, end: 20190222
  6. POTASSIUM CHLORIDE. [Concomitant]
     Active Substance: POTASSIUM CHLORIDE
     Indication: HYPOKALAEMIA
     Dosage: 40 OTHER QD
     Route: 042
     Dates: start: 20190308, end: 20190308
  7. NIRAPARIB [Suspect]
     Active Substance: NIRAPARIB
     Dosage: MOST RECENT DOSE OF NIRAPARIB PRIOR TO THE ONSET OF SMALL BOWEL OBSTRUCTION: 05/MAR/2019 (200 MG)
     Route: 048
     Dates: start: 20190305, end: 20190305
  8. NIRAPARIB [Suspect]
     Active Substance: NIRAPARIB
     Dosage: MOST RECENT DOSE OF NIRAPARIB PRIOR TO THE ONSET OF SYNCOPE: 16/APR/2019 (200 MG)
     Route: 048
     Dates: start: 20190416, end: 20190416
  9. LOPERAMIDE [Concomitant]
     Active Substance: LOPERAMIDE
     Indication: DIARRHOEA
     Dosage: 2 MG, 1 IN 1 AS REQUIRED
     Route: 048
     Dates: start: 20190205
  10. NIRAPARIB [Suspect]
     Active Substance: NIRAPARIB
     Dosage: MOST RECENT DOSE OF NIRAPARIB PRIOR TO THE ONSET OF WORSENING OF DIARRHEA: 18/FEB/2019 (200 MG)
     Route: 048
     Dates: start: 20190218, end: 20190218
  11. COBIMETINIB. [Suspect]
     Active Substance: COBIMETINIB
     Dosage: MOST RECENT DOSE PRIOR TO COBIMETINIB PRIOR TO THE ONSET OF SMALL BOWEL: 05/MAR/2019 (60 MG)
     Route: 048
     Dates: start: 20190305, end: 20190305
  12. ENOXAPARIN [Concomitant]
     Active Substance: ENOXAPARIN
     Dosage: 40 MG, QD
     Route: 058
     Dates: start: 20190312, end: 20190313
  13. NIRAPARIB [Suspect]
     Active Substance: NIRAPARIB
     Dosage: MOST RECENT DOSE OF NIRAPARIB PRIOR TO THE ONSET OF ISCHEMIC STROKE AND GI BLEED: 15/APR/2019
     Route: 048
     Dates: start: 20190415, end: 20190415
  14. COBIMETINIB. [Suspect]
     Active Substance: COBIMETINIB
     Indication: OVARIAN CANCER
     Dosage: MOST RECENT DOSE PRIOR TO COBIMETINIB PRIOR TO THE ONSET OF CHOLELITHIAIS: 20/FEB/2019 (60 MG)
     Route: 048
     Dates: start: 20190205, end: 20190220
  15. COBIMETINIB. [Suspect]
     Active Substance: COBIMETINIB
     Dosage: MOST RECENT DOSE PRIOR TO COBIMETINIB PRIOR TO THE ONSET OF SYNCOPE: 16/APR/2019
     Route: 048
     Dates: start: 20190416, end: 20190416
  16. PREGABALINUM [Concomitant]
     Indication: PERIPHERAL SENSORY NEUROPATHY
     Dosage: 150 MG, 1 IN 1 D
     Route: 048
     Dates: start: 20181022
  17. LORAZEPAM. [Concomitant]
     Active Substance: LORAZEPAM
     Indication: NAUSEA
     Dosage: 0.5 MG, 1 IN 1 AS REQUIRED
     Route: 048
     Dates: start: 20190205
  18. PARACETAMOL [Concomitant]
     Active Substance: ACETAMINOPHEN
     Dosage: 650 MG, QD
     Route: 048
     Dates: start: 20190307, end: 20190310
  19. ENOXAPARIN [Concomitant]
     Active Substance: ENOXAPARIN
     Indication: THROMBOSIS PROPHYLAXIS
     Dosage: 40 MG, QD
     Route: 058
     Dates: start: 20190222
  20. SUMATRIPTAN. [Concomitant]
     Active Substance: SUMATRIPTAN
     Indication: HEADACHE
     Dosage: 25 MG, QD
     Route: 048
     Dates: start: 20190309, end: 20190309
  21. MESALAMINE. [Concomitant]
     Active Substance: MESALAMINE
     Indication: CHOLECYSTITIS
     Dosage: 1.2 G, BID
     Route: 048
     Dates: start: 20190312, end: 20190313
  22. COBIMETINIB. [Suspect]
     Active Substance: COBIMETINIB
     Dosage: MOST RECENT DOSE PRIOR TO COBIMETINIB PRIOR TO THE ONSET OF ISCHEMIC STROKE AND GI BLEE: 15/APR/2019
     Route: 048
     Dates: start: 20190415, end: 20190415
  23. PROCHLORPERAZINE. [Concomitant]
     Active Substance: PROCHLORPERAZINE
     Indication: NAUSEA
     Dosage: 10 MG, 1 IN 1 AS REQUIRED
     Route: 048
     Dates: start: 20190205
  24. ACLOVATE [Concomitant]
     Active Substance: ALCLOMETASONE DIPROPIONATE
     Indication: RASH
     Dosage: 0.05 %, BID
     Route: 061
     Dates: start: 20190219
  25. ALBUTEROL                          /00139501/ [Concomitant]
     Active Substance: ALBUTEROL
     Indication: WHEEZING
     Dosage: 2.5 MG, PRN
     Route: 045
     Dates: start: 20190220
  26. PEPCID [Concomitant]
     Active Substance: FAMOTIDINE
     Indication: NAUSEA
     Dosage: 20 MG, QD
     Route: 042
     Dates: start: 20190220
  27. MORPHINE [Concomitant]
     Active Substance: MORPHINE
     Indication: PAIN
     Dosage: 3 MG, PRN
     Route: 042
     Dates: start: 20190222, end: 20190222
  28. CHLORASEPTIC SORE THROAT [Concomitant]
     Active Substance: PHENOL
     Indication: GASTROINTESTINAL TUBE INSERTION
     Dosage: 1.4 %, PRN
     Route: 048
     Dates: start: 20190308, end: 20190310
  29. NIRAPARIB [Suspect]
     Active Substance: NIRAPARIB
     Indication: OVARIAN CANCER
     Dosage: MOST RECENT DOSE OF NIRAPARIB PRIOR TO THE ONSET OF CHOLELITHIAIS: 20/FEB/2019 (200 MG)
     Route: 048
     Dates: start: 20190205, end: 20190220
  30. COBIMETINIB. [Suspect]
     Active Substance: COBIMETINIB
     Dosage: MOST RECENT DOSE PRIOR TO COBIMETINIB PRIOR TO THE ONSET OF WORSENING DIARRHEA: 18/FEB/2019
     Route: 048
     Dates: start: 20190218, end: 20190218
  31. TRAZODONE [Concomitant]
     Active Substance: TRAZODONE HYDROCHLORIDE
     Indication: PRODUCT USED FOR UNKNOWN INDICATION
     Dosage: 50 MG, 1 IN 1 D
     Route: 048
     Dates: start: 20190205
  32. KINEVAC [Concomitant]
     Active Substance: SINCALIDE
     Indication: CHOLELITHIASIS
     Dosage: 2.1 ?G, QD
     Route: 042
     Dates: start: 20190222, end: 20190222
  33. KETOROLAC [Concomitant]
     Active Substance: KETOROLAC TROMETHAMINE
     Indication: ABDOMINAL PAIN
     Dosage: 30 MG, PRN
     Route: 042
     Dates: start: 20190309, end: 20190309
  34. METOPROLOL. [Concomitant]
     Active Substance: METOPROLOL
     Indication: HYPERTENSION
     Dosage: 100 MG, 1 IN 1 D
     Route: 048
     Dates: start: 20181226
  35. DOCUSATE SODIUM. [Concomitant]
     Active Substance: DOCUSATE SODIUM
     Indication: CONSTIPATION
     Dosage: 100 MG, 1 IN 1 AS REQUIRED
     Route: 048
     Dates: start: 20180221
  36. BENADRYL [Concomitant]
     Active Substance: DIPHENHYDRAMINE HYDROCHLORIDE
     Indication: INSOMNIA
     Dosage: UNK
     Dates: start: 20190222
  37. PARACETAMOL [Concomitant]
     Active Substance: ACETAMINOPHEN
     Indication: PYREXIA
     Dosage: 650 MG, QD
     Route: 048
     Dates: start: 20190220, end: 20190220
  38. LIDEX [Concomitant]
     Active Substance: FLUOCINONIDE
     Indication: RASH
     Dosage: 0.5 %, QD
     Route: 061
     Dates: start: 20190219
  39. DOXYCYCLINE. [Concomitant]
     Active Substance: DOXYCYCLINE
     Indication: RASH
     Dosage: 100 MG, BID
     Route: 048
     Dates: start: 20190213
  40. POTASSIUM CHLORIDE. [Concomitant]
     Active Substance: POTASSIUM CHLORIDE
     Indication: NUTRITIONAL SUPPLEMENTATION
     Dosage: 40 UNK QD
     Route: 042
     Dates: start: 20190222, end: 20190222
  41. IBUPROFEN. [Concomitant]
     Active Substance: IBUPROFEN
     Indication: PAIN
     Dosage: 600 MG, QID
     Route: 048
     Dates: start: 20190221
  42. ERTAPENEM. [Concomitant]
     Active Substance: ERTAPENEM SODIUM
     Indication: INFECTION
     Dosage: 1000 ?G, QD
     Route: 042
     Dates: start: 20190221, end: 20190223
  43. HYDRALAZINE [Concomitant]
     Active Substance: HYDRALAZINE HYDROCHLORIDE
     Indication: GASTROINTESTINAL TUBE INSERTION
     Dosage: 10 MG, PRN
     Route: 042
     Dates: start: 20190308, end: 20190309

REACTIONS (6)
  - Syncope [Recovering/Resolving]
  - Gastrointestinal haemorrhage [Recovered/Resolved]
  - Cholelithiasis [Recovered/Resolved]
  - Small intestinal obstruction [Fatal]
  - Ischaemic stroke [Not Recovered/Not Resolved]
  - Diarrhoea [Not Recovered/Not Resolved]

NARRATIVE: CASE EVENT DATE: 20190219
